FAERS Safety Report 10067565 (Version 2)
Quarter: 2014Q2

REPORT INFORMATION
  Report Type: Spontaneous
  Country: IT (occurrence: IT)
  Receive Date: 20140409
  Receipt Date: 20140422
  Transmission Date: 20141212
  Serious: Yes (Other)
  Sender: FDA-Public Use
  Company Number: IT-JNJFOC-20140400262

PATIENT
  Age: 60 Year
  Sex: Female
  Weight: 100 kg

DRUGS (6)
  1. RISPERDAL [Suspect]
     Indication: MEDICATION ERROR
     Route: 048
     Dates: start: 20140328, end: 20140328
  2. ABILIFY [Suspect]
     Indication: MEDICATION ERROR
     Route: 048
     Dates: start: 20140328, end: 20140328
  3. DEPAKIN CHRONO [Suspect]
     Indication: MEDICATION ERROR
     Route: 048
     Dates: start: 20140328, end: 20140328
  4. LORAZEPAM [Suspect]
     Indication: MEDICATION ERROR
     Route: 048
     Dates: start: 20140328, end: 20140328
  5. CLOZAPINE [Suspect]
     Indication: MEDICATION ERROR
     Route: 048
     Dates: start: 20140328, end: 20140328
  6. AKINETON [Suspect]
     Indication: DRUG ADMINISTRATION ERROR
     Route: 048
     Dates: start: 20140328, end: 20140328

REACTIONS (2)
  - Sopor [Unknown]
  - Medication error [Unknown]
